FAERS Safety Report 4897461-0 (Version None)
Quarter: 2006Q1

REPORT INFORMATION
  Report Type: 
  Country: None (occurrence: None)
  Receive Date: 20060130
  Receipt Date: 20060130
  Transmission Date: 20060701
  Serious: Yes (Life-Threatening)
  Sender: FDA-Public Use
  Company Number: None

PATIENT
  Age: 74 Year
  Sex: Female
  Weight: 67.1324 kg

DRUGS (1)
  1. CISPLATIN [Suspect]
     Indication: MESOTHELIOMA
     Dosage: 80 MG EVERY 4 WEEKS IV
     Route: 042
     Dates: start: 20051017, end: 20060123

REACTIONS (4)
  - ERYTHEMA [None]
  - INFUSION RELATED REACTION [None]
  - NASAL CONGESTION [None]
  - URTICARIA [None]
